FAERS Safety Report 9213146 (Version 3)
Quarter: 2015Q4

REPORT INFORMATION
  Report Type: Spontaneous
  Country: US (occurrence: US)
  Receive Date: 20130405
  Receipt Date: 20151020
  Transmission Date: 20160305
  Serious: Yes (Life-Threatening, Hospitalization, Disabling, Other)
  Sender: FDA-Public Use
  Company Number: US-BAYER-2013-041461

PATIENT
  Age: 26 Year
  Sex: Female
  Weight: 98 kg

DRUGS (3)
  1. CEFTRIAXONE. [Concomitant]
     Active Substance: CEFTRIAXONE
  2. MIRENA [Suspect]
     Active Substance: LEVONORGESTREL
     Indication: CONTRACEPTION
     Dosage: 20 MCG/24HR, CONT
     Route: 015
     Dates: start: 20110126, end: 20121213
  3. IBUPROFEN. [Concomitant]
     Active Substance: IBUPROFEN
     Indication: MENORRHAGIA

REACTIONS (18)
  - Uterine perforation [None]
  - Vomiting [None]
  - Vaginal haemorrhage [None]
  - Genital haemorrhage [None]
  - Heart rate decreased [None]
  - Abdominal pain lower [None]
  - Emotional distress [None]
  - Infertility female [None]
  - Renal failure [None]
  - Pain [None]
  - Dyspareunia [None]
  - Mobility decreased [None]
  - Menorrhagia [None]
  - Device issue [None]
  - Post procedural haemorrhage [None]
  - Injury [None]
  - Neck pain [None]
  - Anxiety [None]

NARRATIVE: CASE EVENT DATE: 201101
